FAERS Safety Report 15300755 (Version 1)
Quarter: 2018Q3

REPORT INFORMATION
  Report Type: Spontaneous
  Country: GB (occurrence: GB)
  Receive Date: 20180821
  Receipt Date: 20180821
  Transmission Date: 20181010
  Serious: Yes (Other)
  Sender: FDA-Public Use
  Company Number: GB-009507513-2011SP012858

PATIENT
  Age: 20 Year
  Sex: Female

DRUGS (1)
  1. IMPLANON [Suspect]
     Active Substance: ETONOGESTREL
     Indication: PRODUCT USED FOR UNKNOWN INDICATION
     Dosage: 68 MG, UNK
     Dates: start: 20091018

REACTIONS (4)
  - Abortion spontaneous [Unknown]
  - Haemorrhage [Unknown]
  - Pregnancy [Unknown]
  - Vomiting [Unknown]

NARRATIVE: CASE EVENT DATE: 201012
